FAERS Safety Report 6133251-9 (Version None)
Quarter: 2009Q1

REPORT INFORMATION
  Report Type: 
  Country: None (occurrence: None)
  Receive Date: 20090326
  Receipt Date: 20090317
  Transmission Date: 20090719
  Serious: Yes (Hospitalization)
  Sender: FDA-Public Use
  Company Number: DE-ASTRAZENECA-2009PK00894

PATIENT
  Age: 74 Year
  Sex: Female
  Weight: 50.8 kg

DRUGS (3)
  1. BUPIVACAINE [Suspect]
     Indication: METASTASES TO SPINE
     Dosage: 3 ML/H
     Route: 008
  2. MORPHIN [Suspect]
     Indication: METASTASES TO SPINE
     Dosage: 3 ML/H
     Route: 008
  3. CLONIDINE [Suspect]
     Indication: METASTASES TO SPINE
     Dosage: 3 ML/H
     Route: 008

REACTIONS (1)
  - SOFT TISSUE NECROSIS [None]
